FAERS Safety Report 23180655 (Version 2)
Quarter: 2023Q4

REPORT INFORMATION
  Report Type: Spontaneous
  Country: US (occurrence: US)
  Receive Date: 20231114
  Receipt Date: 20231123
  Transmission Date: 20240110
  Serious: Yes (Hospitalization)
  Sender: FDA-Public Use
  Company Number: US-CTI BIOPHARMA-2023US04218

PATIENT

DRUGS (1)
  1. VONJO [Suspect]
     Active Substance: PACRITINIB
     Indication: Myelofibrosis
     Dosage: 200 MG, BID
     Route: 048
     Dates: start: 20230914

REACTIONS (3)
  - Blood sodium decreased [Recovered/Resolved]
  - Product dose omission issue [Unknown]
  - Diarrhoea [Recovered/Resolved]

NARRATIVE: CASE EVENT DATE: 20230914
